FAERS Safety Report 5925395-9 (Version None)
Quarter: 2008Q4

REPORT INFORMATION
  Report Type: 
  Country: None (occurrence: None)
  Receive Date: 20081021
  Receipt Date: 20081016
  Transmission Date: 20090506
  Serious: Yes (Death)
  Sender: FDA-Public Use
  Company Number: FR-ELI_LILLY_AND_COMPANY-FR200708006269

PATIENT
  Sex: Female
  Weight: 85 kg

DRUGS (9)
  1. ZYPREXA [Suspect]
     Indication: AGITATION
     Dosage: 10 MG, OTHER
     Route: 030
     Dates: start: 20070724, end: 20070726
  2. ZYPREXA [Suspect]
     Dosage: 20 MG, DAILY (1/D)
     Route: 048
     Dates: start: 20070727
  3. LOXAPINE HCL [Concomitant]
     Indication: AGITATION
     Dosage: 250 MG, OTHER
     Route: 030
     Dates: start: 20070723, end: 20070701
  4. LOXAPINE HCL [Concomitant]
     Dosage: 3 D/F, UNKNOWN
     Route: 030
     Dates: start: 20070701, end: 20070701
  5. LOXAPINE HCL [Concomitant]
     Dosage: 3 D/F, UNK
     Route: 030
     Dates: start: 20070724, end: 20070724
  6. LOXAPINE HCL [Concomitant]
     Dosage: 6 D/F, UNK
     Route: 030
     Dates: start: 20070726
  7. LOXAPINE HCL [Concomitant]
     Dosage: 300 MG, DAILY (1/D)
     Route: 048
     Dates: start: 20070726, end: 20070726
  8. LOXAPINE HCL [Concomitant]
     Dosage: 200 MG, DAILY (1/D)
     Route: 048
     Dates: start: 20070727
  9. VALIUM [Concomitant]
     Dosage: 1 D/F, UNK
     Dates: start: 20070723, end: 20070701

REACTIONS (3)
  - ACUTE PULMONARY OEDEMA [None]
  - BRAIN OEDEMA [None]
  - PULMONARY EMBOLISM [None]
